FAERS Safety Report 22369169 (Version 1)
Quarter: 2023Q2

REPORT INFORMATION
  Report Type: Report from Study
  Country: US (occurrence: US)
  Receive Date: 20230525
  Receipt Date: 20230525
  Transmission Date: 20230722
  Serious: Yes (Other)
  Sender: FDA-Public Use
  Company Number: US-ABBVIE-5179097

PATIENT
  Sex: Female
  Weight: 51 kg

DRUGS (14)
  1. VENCLEXTA [Suspect]
     Active Substance: VENETOCLAX
     Indication: Acute myeloid leukaemia
     Dosage: FORM STRENGTH: 100 MILLIGRAM
     Route: 048
  2. VENCLEXTA [Suspect]
     Active Substance: VENETOCLAX
     Indication: Acute myeloid leukaemia
     Dosage: FORM STRENGTH: 100 MILLIGRAM
     Route: 048
  3. VENCLEXTA [Suspect]
     Active Substance: VENETOCLAX
     Indication: Acute myeloid leukaemia
     Dosage: STARTING DAY 3, TAKE 4 TABLETS, FORM STRENGTH: 100 MILLIGRAM
     Route: 048
  4. VENCLEXTA [Suspect]
     Active Substance: VENETOCLAX
     Indication: Acute myeloid leukaemia
     Dosage: FORM STRENGTH: 100 MILLIGRAM
     Route: 048
     Dates: start: 20221026
  5. Allergy Relief [Concomitant]
     Indication: Product used for unknown indication
     Dosage: INHALE 1 SPRAY (50 MCG) IN EACH NOSTRIL BY INTRANASAL ROUTE ONCE DAILY), 24 HOUR ALLERGY RELIEF. ...
     Route: 045
  6. ZYRTEC [Concomitant]
     Active Substance: CETIRIZINE HYDROCHLORIDE
     Indication: Product used for unknown indication
     Route: 048
  7. IRON [Concomitant]
     Active Substance: IRON
     Indication: Product used for unknown indication
     Dosage: 18-400 MG-MCG TABLET
     Route: 048
  8. LEVOTHYROXINE [Concomitant]
     Active Substance: LEVOTHYROXINE
     Indication: Product used for unknown indication
     Route: 048
  9. ONDANSETRON HYDROCHLORIDE [Concomitant]
     Active Substance: ONDANSETRON HYDROCHLORIDE
     Indication: Nausea
     Dosage: FORM STRENGTH: 4 MILLIGRAM
     Route: 048
  10. FISH OIL [Concomitant]
     Active Substance: FISH OIL
     Indication: Product used for unknown indication
     Dosage: 1,000 MG (120 MG-180 MG) CAPSULE
     Route: 048
  11. SODIUM CHLORIDE [Concomitant]
     Active Substance: SODIUM CHLORIDE
     Indication: Product used for unknown indication
     Dosage: 5 % OPHTHALMIC (EYE) OINTMENT
     Route: 047
  12. NAUSEA [Concomitant]
     Indication: Nausea
     Dosage: TAKE 1 CAPSULE (300 MG) BY ORAL ROUTE 1 HOUR BEFORE DENTAL APPOINTMENT AND ONE 6  HOURS LATER), F...
     Route: 048
  13. VIDAZA [Concomitant]
     Active Substance: AZACITIDINE
     Indication: Product used for unknown indication
     Dosage: 75 MG/M2 SC (DAYS 107 OF EACH 28-DAY CYCLE)
     Route: 058
     Dates: start: 20221026
  14. FOLIC ACID [Concomitant]
     Active Substance: FOLIC ACID
     Indication: Product used for unknown indication
     Dosage: 18-400 MG-MCG TABLET
     Route: 048

REACTIONS (8)
  - Pancytopenia [Unknown]
  - Abnormal loss of weight [Unknown]
  - Rash [Unknown]
  - Hypothyroidism [Unknown]
  - Dysuria [Unknown]
  - Cystitis [Unknown]
  - Neutropenia [Unknown]
  - Haematuria [Unknown]
